FAERS Safety Report 6028191-X (Version None)
Quarter: 2009Q1

REPORT INFORMATION
  Report Type: 
  Country: None (occurrence: None)
  Receive Date: 20090106
  Receipt Date: 20081231
  Transmission Date: 20090719
  Serious: Yes (Hospitalization)
  Sender: FDA-Public Use
  Company Number: US-BRISTOL-MYERS SQUIBB COMPANY-14458590

PATIENT
  Age: 59 Year
  Sex: Male
  Weight: 81 kg

DRUGS (3)
  1. ERBITUX [Suspect]
     Indication: HEAD AND NECK CANCER
     Dosage: STARTED ON 11NOV08;TOTAL NO OF COURSES 6
     Dates: start: 20081224, end: 20081224
  2. CISPLATIN [Suspect]
     Indication: HEAD AND NECK CANCER
     Dosage: STARTED ON 11NOV08;TOTAL NO OF COURSES 6
     Dates: start: 20081209, end: 20081209
  3. RADIOTHERAPY [Suspect]
     Indication: HEAD AND NECK CANCER
     Dosage: 1 DF = 70GY ; NO. OF FRACTIONS - 35
     Dates: end: 20081230

REACTIONS (8)
  - APNOEA [None]
  - BRADYCARDIA [None]
  - DEHYDRATION [None]
  - DYSPHAGIA [None]
  - HYPOTENSION [None]
  - ODYNOPHAGIA [None]
  - PYREXIA [None]
  - STOMATITIS [None]
